FAERS Safety Report 8420999-6 (Version None)
Quarter: 2012Q2

REPORT INFORMATION
  Report Type: 
  Country: None (occurrence: None)
  Receive Date: 20120531
  Receipt Date: 20120517
  Transmission Date: 20120825
  Serious: Yes (Hospitalization, Other)
  Sender: FDA-Public Use
  Company Number: 2012PL000097

PATIENT
  Age: 74 Year
  Sex: Male

DRUGS (9)
  1. PROLEUKIN [Suspect]
     Indication: METASTATIC RENAL CELL CARCINOMA
  2. ALLOPURINOL [Concomitant]
  3. SORAFENIB TOSILATE [Concomitant]
  4. TECELEUKIN [Concomitant]
  5. PAXIL [Concomitant]
  6. INTERFERON ALFA [Concomitant]
  7. CRESTOR [Concomitant]
  8. SUNITINIB 	MALATE [Concomitant]
  9. EVEROLIMUS (EVEROLIMUS) [Suspect]
     Indication: RENAL CELL CARCINOMA
     Dosage: 10 MG;QD;PO
     Route: 048
     Dates: start: 20100930

REACTIONS (6)
  - INTERSTITIAL LUNG DISEASE [None]
  - NEOPLASM PROGRESSION [None]
  - SEPSIS [None]
  - ENTEROCOLITIS [None]
  - HYPERGLYCAEMIA [None]
  - METASTATIC RENAL CELL CARCINOMA [None]
